FAERS Safety Report 14149216 (Version 2)
Quarter: 2017Q4

REPORT INFORMATION
  Report Type: Other
  Country: DK (occurrence: DK)
  Receive Date: 20171101
  Receipt Date: 20171114
  Transmission Date: 20180321
  Serious: Yes (Disabling)
  Sender: FDA-Public Use
  Company Number: DK-TAKEDA-2017TUS022389

PATIENT
  Age: 45 Year
  Sex: Female

DRUGS (3)
  1. AMITRIPTYLIN [Concomitant]
     Active Substance: AMITRIPTYLINE
     Indication: DEPRESSION
     Dosage: STYRKE: 25 MG
     Route: 048
     Dates: start: 20150113
  2. ENTYVIO [Suspect]
     Active Substance: VEDOLIZUMAB
     Indication: COLITIS
     Dosage: 300 MG, QD
     Route: 042
     Dates: start: 20170913, end: 20170913
  3. CALCIUM + VIT D [Concomitant]
     Active Substance: CALCIUM\VITAMIN D
     Indication: VITAMIN SUPPLEMENTATION
     Dosage: 400 MG AND 19 MICROGRAM, BID
     Route: 048
     Dates: start: 20170318

REACTIONS (3)
  - General physical health deterioration [Unknown]
  - Generalised oedema [Unknown]
  - Dyspnoea [Unknown]

NARRATIVE: CASE EVENT DATE: 20170920
